FAERS Safety Report 6490445-0 (Version None)
Quarter: 2009Q4

REPORT INFORMATION
  Report Type: 
  Country: None (occurrence: None)
  Receive Date: 20091211
  Receipt Date: 20091130
  Transmission Date: 20100525
  Serious: Yes (Hospitalization)
  Sender: FDA-Public Use
  Company Number: GB-JNJFOC-20090708168

PATIENT
  Sex: Male
  Weight: 76 kg

DRUGS (5)
  1. REMICADE [Suspect]
     Dosage: 2ND INFUSION AT WEEK 2 OF INDUCTION TREATMENT
     Route: 042
  2. REMICADE [Suspect]
     Indication: CROHN'S DISEASE
     Route: 042
  3. PIRITON [Concomitant]
  4. PREDNISOLONE [Concomitant]
     Indication: ANTIINFLAMMATORY THERAPY
  5. MESALAZINE [Concomitant]
     Indication: ANTIINFLAMMATORY THERAPY

REACTIONS (6)
  - BRONCHOSPASM [None]
  - DYSPNOEA [None]
  - INFUSION RELATED REACTION [None]
  - MALAISE [None]
  - RASH [None]
  - TYPE IV HYPERSENSITIVITY REACTION [None]
